FAERS Safety Report 23638863 (Version 1)
Quarter: 2024Q1

REPORT INFORMATION
  Report Type: Spontaneous
  Country: US (occurrence: US)
  Receive Date: 20240315
  Receipt Date: 20240315
  Transmission Date: 20240410
  Serious: No
  Sender: FDA-Public Use
  Company Number: US-DSJP-DSU-2024-111055

PATIENT
  Age: 85 Year
  Sex: Male

DRUGS (2)
  1. SAVAYSA [Suspect]
     Active Substance: EDOXABAN TOSYLATE
     Indication: Pulmonary embolism
     Dosage: 60 MG, QD
     Route: 048
  2. SAVAYSA [Suspect]
     Active Substance: EDOXABAN TOSYLATE
     Indication: Thrombosis
     Dosage: 30 MG, QD
     Route: 048

REACTIONS (3)
  - Therapy change [Recovered/Resolved]
  - Insurance issue [Unknown]
  - Inability to afford medication [Unknown]

NARRATIVE: CASE EVENT DATE: 20240101
